FAERS Safety Report 9644005 (Version 4)
Quarter: 2014Q1

REPORT INFORMATION
  Report Type: Report from Study
  Country: US (occurrence: US)
  Receive Date: 20131024
  Receipt Date: 20140130
  Transmission Date: 20141002
  Serious: Yes (Life-Threatening)
  Sender: FDA-Public Use
  Company Number: US-ROCHE-1266862

PATIENT
  Age: 71 Year
  Sex: Female
  Weight: 99.88 kg

DRUGS (9)
  1. LUCENTIS [Suspect]
     Indication: DIABETIC RETINAL OEDEMA
     Dosage: BOTH EYES ONCE PER MONTH
     Route: 050
     Dates: start: 20130823
  2. LUCENTIS [Suspect]
     Indication: AGE-RELATED MACULAR DEGENERATION
  3. AVASTIN [Suspect]
     Indication: DIABETIC RETINAL OEDEMA
     Dosage: BOTH EYES, FOR 3-4 MONTHS
     Route: 050
     Dates: start: 201301
  4. PERCOCET [Concomitant]
     Dosage: 10/325 MG
     Route: 065
  5. LOSARTAN [Concomitant]
     Indication: HYPERTENSION
     Route: 065
  6. LEVOTHYROXINE [Concomitant]
     Indication: HYPOTHYROIDISM
     Route: 065
  7. METFORMIN [Concomitant]
     Indication: TYPE 2 DIABETES MELLITUS
     Route: 048
  8. GLIPIZIDE [Concomitant]
     Indication: TYPE 2 DIABETES MELLITUS
     Route: 048
  9. GLIBENCLAMIDE [Concomitant]
     Indication: DIABETES MELLITUS
     Route: 065

REACTIONS (11)
  - Headache [Recovered/Resolved]
  - Visual acuity reduced [Recovered/Resolved]
  - Drug ineffective [Unknown]
  - Blindness transient [Recovering/Resolving]
  - Injection site pain [Unknown]
  - Cataract [Not Recovered/Not Resolved]
  - Vision blurred [Not Recovered/Not Resolved]
  - Glare [Not Recovered/Not Resolved]
  - Cough [Unknown]
  - Product quality issue [Unknown]
  - Off label use [Unknown]
